FAERS Safety Report 21765829 (Version 1)
Quarter: 2022Q4

REPORT INFORMATION
  Report Type: Spontaneous
  Country: FR (occurrence: FR)
  Receive Date: 20221222
  Receipt Date: 20221222
  Transmission Date: 20230113
  Serious: Yes (Hospitalization, Other)
  Sender: FDA-Public Use
  Company Number: FR-AFSSAPS-GR20222568

PATIENT
  Age: 40 Year
  Sex: Male
  Weight: 61 kg

DRUGS (4)
  1. DIAZEPAM [Suspect]
     Active Substance: DIAZEPAM
     Indication: Intentional overdose
     Dosage: 40 DOSAGE FORM
     Route: 048
     Dates: start: 20221022, end: 20221022
  2. MIRTAZAPINE [Suspect]
     Active Substance: MIRTAZAPINE
     Indication: Intentional overdose
     Dosage: 48 DOSAGE FORM
     Route: 048
     Dates: start: 20221022, end: 20221022
  3. CYAMEMAZINE [Suspect]
     Active Substance: CYAMEMAZINE
     Indication: Intentional overdose
     Dosage: 21 DOSAGE FORM
     Route: 048
     Dates: start: 20221022, end: 20221022
  4. METHADONE HYDROCHLORIDE [Suspect]
     Active Substance: METHADONE HYDROCHLORIDE
     Indication: Intentional overdose
     Dosage: 13 DOSAGE FORM
     Route: 048
     Dates: start: 20221022, end: 20221022

REACTIONS (3)
  - Coma [Recovered/Resolved]
  - Poisoning deliberate [Recovered/Resolved]
  - Vomiting [Recovered/Resolved]

NARRATIVE: CASE EVENT DATE: 20221022
